FAERS Safety Report 9238596 (Version 1)
Quarter: 2013Q2

REPORT INFORMATION
  Report Type: Spontaneous
  Country: CH (occurrence: CH)
  Receive Date: 20130418
  Receipt Date: 20130418
  Transmission Date: 20140414
  Serious: Yes (Other)
  Sender: FDA-Public Use
  Company Number: CH-JNJFOC-20130405872

PATIENT
  Age: 36 Year
  Sex: Female
  Weight: 114 kg

DRUGS (3)
  1. TOPAMAX [Suspect]
     Indication: PRODUCT USED FOR UNKNOWN INDICATION
     Route: 048
     Dates: start: 2012
  2. FLUOXETINE [Suspect]
     Indication: PRODUCT USED FOR UNKNOWN INDICATION
     Route: 065
     Dates: start: 2012
  3. METHADON [Suspect]
     Indication: SUBSTANCE ABUSE
     Route: 065
     Dates: start: 2012

REACTIONS (2)
  - Exposure during pregnancy [Recovered/Resolved]
  - Abortion [Unknown]
